FAERS Safety Report 9294037 (Version 1)
Quarter: 2013Q1

REPORT INFORMATION
  Report Type: Spontaneous
  Country: US (occurrence: None)
  Receive Date: 20121226
  Receipt Date: 20121226
  Transmission Date: 20140127
  Serious: Yes (Other)
  Sender: FDA-Public Use
  Company Number: 344811

PATIENT
  Age: 64 Year
  Sex: Female
  Weight: 48.5 kg

DRUGS (14)
  1. LEVEMIR FLEXPEN [Suspect]
     Indication: TYPE 2 DIABETES MELLITUS
     Dosage: 02/13/2012 TO UNK, 20 U IF EAT NORMALLY, 10 U IF DON^T EAT NORMALLY, SUBCUTANEOUS
  2. METFORMIN (METFORMIN) [Concomitant]
  3. ONGLYZA (SAXAGLIPTIN HYDROCHLORIDE) [Concomitant]
  4. MULTIVITAMIN /00097801/ (ASCORBIC ACID, CALCIUM PANTOTHENATE, ERGOCALCIFEROL, NICOTINAMIDE, PYRIDOXINE HYDROCHLORIDE, RETINAL, RIBOFLAVIN, THIAMINE HYDROCHLORIDE) [Concomitant]
  5. ASPIRIN (ACETYLSALICYLIC ACID) [Concomitant]
  6. SIMVASTATIN (SIMVASTATIN) [Concomitant]
  7. FOSINOPRIL (FOSINOPRIL) [Concomitant]
  8. LABETALOL HCL (LABETALOL HYDROCHLORIDE) [Concomitant]
  9. PREMARIN (ESTROGENS CONJUGATED) [Concomitant]
  10. CLONIDINE HCL (CLONIDINE HYDROCHLORIDE) [Concomitant]
  11. ZOLPIDEM TARTRATE (ZOLPIDEM TARTRATE) [Concomitant]
  12. CIPROFLOXACIN (CIPROFLOXACIN) [Concomitant]
  13. DIPHENOXYLATE W/ ATROPINE SULFATE (ATROPINE SULFATE, DIPHENOXYLATE) [Concomitant]
  14. PREDNISONE (PREDNISONE) [Concomitant]

REACTIONS (2)
  - Inappropriate schedule of drug administration [None]
  - Blood glucose increased [None]
